FAERS Safety Report 11657481 (Version 2)
Quarter: 2015Q4

REPORT INFORMATION
  Report Type: Report from Study
  Country: US (occurrence: US)
  Receive Date: 20151023
  Receipt Date: 20151027
  Transmission Date: 20160304
  Serious: No
  Sender: FDA-Public Use
  Company Number: US-ABBVIE-15P-163-1331569-00

PATIENT
  Age: 35 Year
  Sex: Female
  Weight: 61.29 kg

DRUGS (1)
  1. LUPRON DEPOT [Suspect]
     Active Substance: LEUPROLIDE ACETATE
     Indication: PRODUCT USED FOR UNKNOWN INDICATION
     Route: 030
     Dates: start: 2007

REACTIONS (5)
  - Dyspareunia [Not Recovered/Not Resolved]
  - Cervix disorder [Not Recovered/Not Resolved]
  - Pelvic pain [Recovered/Resolved]
  - Dysmenorrhoea [Not Recovered/Not Resolved]
  - Memory impairment [Unknown]

NARRATIVE: CASE EVENT DATE: 2008
